FAERS Safety Report 5576317-4 (Version None)
Quarter: 2007Q4

REPORT INFORMATION
  Report Type: 
  Country: None (occurrence: None)
  Receive Date: 20071228
  Receipt Date: 20071219
  Transmission Date: 20080405
  Serious: Yes (Hospitalization)
  Sender: FDA-Public Use
  Company Number: PHBS2003JP09425

PATIENT
  Age: 11 Year
  Sex: Male
  Weight: 48 kg

DRUGS (17)
  1. NEORAL [Suspect]
     Indication: NEPHROTIC SYNDROME
     Dosage: UNK, UNK
     Route: 048
     Dates: start: 20020601, end: 20030113
  2. NEORAL [Suspect]
     Dosage: 50 MG/D
     Route: 048
     Dates: start: 20030402, end: 20030427
  3. NEORAL [Suspect]
     Dosage: 100 MG/D
     Route: 048
     Dates: start: 20030428, end: 20030429
  4. NEORAL [Suspect]
     Dosage: 50 MG/D
     Route: 048
     Dates: start: 20030430, end: 20030501
  5. NEORAL [Suspect]
     Dosage: 75 MG/D
     Route: 048
     Dates: start: 20030502, end: 20030512
  6. PREDONINE [Suspect]
     Dosage: 5 MG/D
     Route: 048
  7. BREDININ [Concomitant]
     Dosage: 150 MG/D
     Route: 065
  8. ANTI-HYPERLIPIDEMIC AGENT [Concomitant]
  9. HEPARIN [Suspect]
     Dosage: 9.8 UNIT/KG/HR
  10. LDL ADSORPTION THERAPY [Suspect]
  11. ADRENAL CORTICAL EXTRACT [Concomitant]
     Dosage: 60 MG/D
     Route: 048
     Dates: start: 20020601
  12. GASTER [Concomitant]
     Dosage: 20 MG/D
  13. SEPAMIT [Concomitant]
     Dosage: 20 MG/D
  14. URINORM [Concomitant]
     Dosage: 250 MG/D
  15. ALDACTONE [Concomitant]
     Dosage: 25 MG/D
  16. LOCHOL [Concomitant]
     Dosage: 20 MG/D
  17. ROCALTROL [Concomitant]
     Dosage: 1 UG/D

REACTIONS (10)
  - BLOOD CREATININE INCREASED [None]
  - BRAIN OEDEMA [None]
  - CEREBRAL ATROPHY [None]
  - CLONIC CONVULSION [None]
  - EPILEPSY [None]
  - HAEMOPTYSIS [None]
  - HEADACHE [None]
  - PHLEBITIS DEEP [None]
  - REVERSIBLE POSTERIOR LEUKOENCEPHALOPATHY SYNDROME [None]
  - SPINAL FRACTURE [None]
